FAERS Safety Report 7384032-X (Version None)
Quarter: 2011Q1

REPORT INFORMATION
  Report Type: 
  Country: None (occurrence: None)
  Receive Date: 20110330
  Receipt Date: 20110215
  Transmission Date: 20110831
  Serious: Yes (Other)
  Sender: FDA-Public Use
  Company Number: US-BAYER-2011-004361

PATIENT
  Sex: Female
  Weight: 61.224 kg

DRUGS (19)
  1. AMBIEN [Concomitant]
     Indication: INSOMNIA
     Dosage: 0.5 DF, QD
     Route: 048
  2. ALBUTEROL SULFATE [Concomitant]
     Indication: ASTHMA
     Dosage: UNK UNK, PRN
     Route: 055
     Dates: start: 20020101
  3. COLCHICINE [Concomitant]
     Indication: GOUT
     Dosage: 1.2 MG, QD
     Route: 048
     Dates: start: 20010602
  4. COZAAR [Concomitant]
     Indication: HYPERTENSION
     Dosage: UNK
     Route: 048
     Dates: start: 20010601
  5. GLIPIZIDE [Concomitant]
     Indication: DIABETES MELLITUS
     Dosage: 2.5 MG, QD
     Route: 048
     Dates: start: 19991101
  6. NORVASC [Concomitant]
     Indication: HYPERTENSION
     Dosage: 10 MG, QD
     Route: 048
     Dates: start: 20011001, end: 20100930
  7. CALCIUM [Concomitant]
     Indication: OSTEOPENIA
     Dosage: 600 MG, QD
     Route: 048
     Dates: start: 20100811
  8. VITAMIN D [Concomitant]
     Indication: OSTEOPENIA
     Dosage: 50000 U, QD
     Route: 048
     Dates: start: 20100811
  9. LEVEMIR [Concomitant]
     Indication: DIABETES MELLITUS
     Dosage: 10 U, QD
     Route: 058
     Dates: start: 20101223
  10. SORAFENIB (RAF KINASE INHIBITOR) [Suspect]
     Indication: HEPATIC NEOPLASM MALIGNANT
     Dosage: 200 MG, BID
     Route: 048
     Dates: start: 20100617
  11. ACULAR LS [Concomitant]
     Indication: DRY EYE
     Dosage: 2 GTT, QD
     Route: 047
     Dates: start: 20080801
  12. ALBUTEROL [Concomitant]
     Indication: ASTHMA
     Dosage: UNK
     Route: 055
     Dates: start: 20020101
  13. NORVASC [Concomitant]
     Dosage: 20 MG, QD
     Route: 048
     Dates: start: 20101010
  14. MULTIVITAMIN PREPARATION + MINERAL SUPPLEMENT [Concomitant]
     Indication: MEDICAL DIET
     Dosage: 1 DF, QD
     Route: 048
     Dates: start: 20100811
  15. BLINDED SORAFENIB (RAF KINASE INHIBITOR) [Suspect]
     Dosage: UNK
     Route: 048
     Dates: start: 20100617
  16. ALLEGRA [Concomitant]
     Indication: SINUS DISORDER
     Dosage: UNK UNK, PRN
     Route: 048
     Dates: start: 20010101
  17. PERIDEX [Concomitant]
     Indication: TONGUE GEOGRAPHIC
     Dosage: 15 ML, QD
     Route: 050
     Dates: start: 20100622
  18. POTASSIUM CHLORIDE [Concomitant]
     Indication: HYPOKALAEMIA
     Dosage: 20 MEQ, QD
     Route: 048
     Dates: start: 20100929
  19. IMODIUM [Concomitant]
     Indication: DIARRHOEA
     Dosage: 2 MG, PRN
     Route: 048
     Dates: start: 20100730

REACTIONS (1)
  - ENCEPHALOPATHY [None]
